FAERS Safety Report 26069798 (Version 1)
Quarter: 2025Q4

REPORT INFORMATION
  Report Type: Spontaneous
  Country: EU (occurrence: EU)
  Receive Date: 20251120
  Receipt Date: 20251120
  Transmission Date: 20260118
  Serious: Yes (Other)
  Sender: TEVA
  Company Number: None

PATIENT
  Sex: Female

DRUGS (1)
  1. LEVOFLOXACIN [Suspect]
     Active Substance: LEVOFLOXACIN
     Indication: Product used for unknown indication
     Dosage: LAST INTAKE SIX AND A HALF YEARS AGO
     Route: 065

REACTIONS (56)
  - Disability [Unknown]
  - Nervous system disorder [Unknown]
  - Panic attack [Unknown]
  - Eczema [Unknown]
  - Decreased immune responsiveness [Unknown]
  - Disturbance in attention [Unknown]
  - Trichorrhexis [Unknown]
  - Sick leave [Unknown]
  - Photophobia [Unknown]
  - Ear discomfort [Unknown]
  - Herpes virus infection [Unknown]
  - Brain fog [Unknown]
  - Dyspnoea [Unknown]
  - Disturbance in attention [Unknown]
  - Slow response to stimuli [Unknown]
  - Fatigue [Unknown]
  - Dry eye [Unknown]
  - Mental impairment [Unknown]
  - Intestinal barrier dysfunction [Unknown]
  - Ear pain [Unknown]
  - Muscular weakness [Unknown]
  - Palpitations [Unknown]
  - Illusion [Unknown]
  - Skin atrophy [Unknown]
  - Palpitations [Unknown]
  - Impaired quality of life [Unknown]
  - Dysbiosis [Unknown]
  - Cough [Unknown]
  - Joint noise [Unknown]
  - Irritable bowel syndrome [Unknown]
  - Influenza [Unknown]
  - Syncope [Unknown]
  - Alopecia [Unknown]
  - Hyperacusis [Unknown]
  - Neck pain [Unknown]
  - Muscle atrophy [Unknown]
  - Muscle twitching [Unknown]
  - Hyperaesthesia [Unknown]
  - Tendon discomfort [Unknown]
  - Gingivitis [Unknown]
  - Cerebral disorder [Unknown]
  - Neuralgia [Unknown]
  - Spinal pain [Unknown]
  - Spinal disorder [Unknown]
  - Gastrointestinal candidiasis [Unknown]
  - Fatigue [Unknown]
  - Aphasia [Unknown]
  - Tympanic membrane disorder [Unknown]
  - Head discomfort [Unknown]
  - Micturition disorder [Unknown]
  - Chills [Unknown]
  - Memory impairment [Unknown]
  - Dyspnoea exertional [Unknown]
  - Photopsia [Unknown]
  - Dry skin [Unknown]
  - Dry mouth [Unknown]
